APPROVED DRUG PRODUCT: ARGATROBAN IN SODIUM CHLORIDE
Active Ingredient: ARGATROBAN
Strength: 125MG/125ML (1MG/ML)
Dosage Form/Route: INJECTABLE;INTRAVENOUS
Application: N022485 | Product #001 | TE Code: AP
Applicant: PLANO PHARMACEUTICALS INC
Approved: May 9, 2011 | RLD: Yes | RS: Yes | Type: RX